FAERS Safety Report 26108378 (Version 1)
Quarter: 2025Q4

REPORT INFORMATION
  Report Type: Spontaneous
  Country: CN (occurrence: CN)
  Receive Date: 20251201
  Receipt Date: 20251201
  Transmission Date: 20260117
  Serious: Yes (Death, Life-Threatening)
  Sender: HQ SPECIALTY
  Company Number: CN-HQ-20250083

PATIENT
  Age: 82 Year
  Sex: Female
  Weight: 49 kg

DRUGS (3)
  1. LINEZOLID [Suspect]
     Active Substance: LINEZOLID
     Indication: Pneumonia
     Dosage: ()
  2. CEFOPERAZONE\SULBACTAM [Suspect]
     Active Substance: CEFOPERAZONE\SULBACTAM
     Indication: Pneumonia
  3. TIGECYCLINE [Suspect]
     Active Substance: TIGECYCLINE
     Indication: Pneumonia

REACTIONS (1)
  - Hyperlactacidaemia [Fatal]
